FAERS Safety Report 6782874-2 (Version None)
Quarter: 2010Q2

REPORT INFORMATION
  Report Type: 
  Country: None (occurrence: None)
  Receive Date: 20100617
  Receipt Date: 20100606
  Transmission Date: 20101027
  Serious: Yes (Congenital Anomaly)
  Sender: FDA-Public Use
  Company Number: 011511

PATIENT
  Sex: Female
  Weight: 4.1277 kg

DRUGS (6)
  1. KEPPRA [Suspect]
     Dosage: 2000 MG TRANSPLACENTAL, 2500 MG TRANSPLACENTAL, 3000 MG TRANSPLACENTAL
     Route: 064
     Dates: start: 20090504
  2. INFLUENZA VACCINE [Concomitant]
  3. PRENATAL VITAMINS [Concomitant]
  4. ALBUTEROL [Concomitant]
  5. VITAMIN D VOOR SENIOPREN [Concomitant]
  6. LEVOTHYROXINE [Concomitant]

REACTIONS (2)
  - MATERNAL DRUGS AFFECTING FOETUS [None]
  - VENTRICULAR SEPTAL DEFECT [None]
